FAERS Safety Report 7250723-4 (Version None)
Quarter: 2011Q1

REPORT INFORMATION
  Report Type: 
  Country: None (occurrence: None)
  Receive Date: 20110128
  Receipt Date: 20110119
  Transmission Date: 20110831
  Serious: Yes (Other)
  Sender: FDA-Public Use
  Company Number: US-JNJFOC-20101204056

PATIENT
  Age: 65 Year
  Sex: Male
  Weight: 90.72 kg

DRUGS (11)
  1. FIBRE, DIETARY [Concomitant]
     Indication: MEDICAL DIET
     Dosage: OVER 2 YEARS
  2. FISH OIL [Concomitant]
     Indication: BLOOD DISORDER
     Dosage: OVER 2 YEARS
  3. MEN MULTIVITAMINS [Concomitant]
     Indication: VITAMIN SUPPLEMENTATION
     Dosage: OVER 2 YEARS
  4. GINKGO BILOBA [Concomitant]
     Indication: MEMORY IMPAIRMENT
     Dosage: OVER 2 YEARS
  5. IMODIUM MULTI-SYMPTOM RELIEF [Suspect]
     Indication: DIARRHOEA
     Dosage: I USED 2 CAPLETS FOR FIRST LOOSE STOOL AND 1 WITH THE NEXT LOOSE STOOL TOOK; 3-4 CAPLETS IN TOTAL
     Route: 048
  6. VITAMIN E WITH SELENIUM [Concomitant]
     Indication: BLOOD CHOLESTEROL
     Dosage: OVER 2 YEARS
  7. NO-FLUSH NIACIN [Concomitant]
     Indication: BLOOD CHOLESTEROL
     Dosage: OVER 2 YEARS
  8. VITAMIN D [Concomitant]
     Indication: VITAMIN SUPPLEMENTATION
     Dosage: OVER 2 YEARS
  9. IMODIUM MULTI-SYMPTOM RELIEF [Suspect]
     Route: 048
  10. GINKGO BILOBA [Concomitant]
     Indication: ARTHROPATHY
     Dosage: OVER 2 YEARS
  11. CINNAMON [Concomitant]
     Indication: BLOOD DISORDER
     Dosage: OVER 2 YEARS

REACTIONS (7)
  - PAIN [None]
  - PROCTALGIA [None]
  - ANORECTAL DISCOMFORT [None]
  - HYPERHIDROSIS [None]
  - PRESYNCOPE [None]
  - CONSTIPATION [None]
  - FAECALOMA [None]
